FAERS Safety Report 23184028 (Version 2)
Quarter: 2024Q1

REPORT INFORMATION
  Report Type: Other
  Country: None (occurrence: FR)
  Receive Date: 20231115
  Receipt Date: 20240131
  Transmission Date: 20240409
  Serious: Yes (Hospitalization, Other)
  Sender: FDA-Public Use
  Company Number: FR-MLMSERVICE-20231027-4627733-1

PATIENT
  Age: 20 Year
  Sex: Female

DRUGS (2)
  1. NITROUS OXIDE [Suspect]
     Active Substance: NITROUS OXIDE
     Indication: Substance use
     Route: 055
  2. VITAMIN B12 [Suspect]
     Active Substance: CYANOCOBALAMIN

REACTIONS (4)
  - Gait disturbance [Unknown]
  - Balance disorder [Unknown]
  - Axonal neuropathy [Unknown]
  - Myelitis [Unknown]
